FAERS Safety Report 8904213 (Version 3)
Quarter: 2012Q4

REPORT INFORMATION
  Report Type: 
  Country: DE (occurrence: DE)
  Receive Date: 20121112
  Receipt Date: 20121126
  Transmission Date: 20130627
  Serious: Yes (Other)
  Sender: FDA-Public Use
  Company Number: DE-INCYTE CORPORATION-2012IN002076

PATIENT
  Age: 77 Year
  Sex: Female

DRUGS (7)
  1. JAKAVI [Suspect]
     Indication: MYELOFIBROSIS
     Dosage: 30 mg, daily
     Route: 048
     Dates: start: 20120914
  2. GODAMED [Concomitant]
     Dosage: 100 mg, UNK
  3. L-THYROXIN [Concomitant]
  4. FRAGMIN [Concomitant]
  5. ATACAND [Concomitant]
  6. TILIDIN [Concomitant]
  7. BONDRONAT [Concomitant]
     Dosage: UNK
     Dates: start: 20120207, end: 20120306

REACTIONS (1)
  - Thrombocytosis [Not Recovered/Not Resolved]
